FAERS Safety Report 7400373-1 (Version None)
Quarter: 2011Q2

REPORT INFORMATION
  Report Type: 
  Country: None (occurrence: None)
  Receive Date: 20110407
  Receipt Date: 20110329
  Transmission Date: 20111010
  Serious: Yes (Hospitalization, Disabling, Other)
  Sender: FDA-Public Use
  Company Number: US-MERCK-0911USA03513

PATIENT
  Age: 62 Year
  Sex: Female
  Weight: 74 kg

DRUGS (2)
  1. ALENDRONATE SODIUM [Suspect]
     Indication: OSTEOPENIA
     Route: 048
     Dates: start: 20080401, end: 20090401
  2. FOSAMAX [Suspect]
     Indication: OSTEOPENIA
     Route: 048
     Dates: start: 20030801, end: 20090501

REACTIONS (39)
  - TOOTH EXTRACTION [None]
  - TACHYCARDIA [None]
  - GASTRITIS [None]
  - GLUCOSE TOLERANCE IMPAIRED [None]
  - FRACTURE NONUNION [None]
  - ANXIETY [None]
  - CORNEAL ABRASION [None]
  - BONE GRAFT [None]
  - CATARACT [None]
  - LOW TURNOVER OSTEOPATHY [None]
  - FALL [None]
  - PATHOLOGICAL FRACTURE [None]
  - HEADACHE [None]
  - PROCEDURAL HYPERTENSION [None]
  - GINGIVITIS [None]
  - FEMUR FRACTURE [None]
  - DEPRESSIVE SYMPTOM [None]
  - STRESS FRACTURE [None]
  - KERATITIS [None]
  - TREATMENT NONCOMPLIANCE [None]
  - SINUS DISORDER [None]
  - CARDIAC DISORDER [None]
  - FATIGUE [None]
  - HYPERKERATOSIS [None]
  - HAEMORRHAGIC ANAEMIA [None]
  - DEVICE FAILURE [None]
  - WEIGHT LOSS POOR [None]
  - DEVICE BREAKAGE [None]
  - OSTEOPOROSIS [None]
  - NOCTURIA [None]
  - MAJOR DEPRESSION [None]
  - ARTHRALGIA [None]
  - HYPOTHYROIDISM [None]
  - HEART RATE IRREGULAR [None]
  - ANAEMIA POSTOPERATIVE [None]
  - RESTLESS LEGS SYNDROME [None]
  - BURSITIS [None]
  - SUPRAVENTRICULAR TACHYCARDIA [None]
  - ARTHROPATHY [None]
